FAERS Safety Report 8549057-7 (Version None)
Quarter: 2012Q3

REPORT INFORMATION
  Report Type: 
  Country: None (occurrence: None)
  Receive Date: 20120730
  Receipt Date: 20120726
  Transmission Date: 20120928
  Serious: No
  Sender: FDA-Public Use
  Company Number: US-PFIZER INC-2012181739

PATIENT
  Sex: Female
  Weight: 91 kg

DRUGS (5)
  1. ADVIL [Concomitant]
     Indication: DEPRESSION
     Dosage: 150 MG, DAILY
  2. VITAMIN D [Concomitant]
     Indication: VITAMIN D DEFICIENCY
     Dosage: 800 MG, DAILY
  3. ADVIL [Concomitant]
     Indication: SLEEP DISORDER
  4. LYRICA [Suspect]
     Indication: FIBROMYALGIA
     Dosage: UNK
     Dates: end: 20100101
  5. ESTER-C [Concomitant]
     Indication: IMMUNE ENHANCEMENT THERAPY
     Dosage: UNK

REACTIONS (3)
  - FATIGUE [None]
  - FIBROMYALGIA [None]
  - ACTIVITIES OF DAILY LIVING IMPAIRED [None]
